FAERS Safety Report 9528470 (Version 4)
Quarter: 2013Q4

REPORT INFORMATION
  Report Type: Report from Study
  Country: JP (occurrence: JP)
  Receive Date: 20130917
  Receipt Date: 20131111
  Transmission Date: 20140711
  Serious: Yes (Hospitalization, Other)
  Sender: FDA-Public Use
  Company Number: JP-NOVOPROD-387351

PATIENT
  Age: 43 Year
  Sex: Male
  Weight: 100.5 kg

DRUGS (7)
  1. VICTOZA HIKACHU INJECTION [Suspect]
     Indication: TYPE 2 DIABETES MELLITUS
     Dosage: UNK
     Route: 058
     Dates: start: 20121117, end: 20130830
  2. LIPIDIL [Concomitant]
     Indication: DYSLIPIDAEMIA
     Dosage: 53.3 MG, QD
     Route: 058
     Dates: start: 20120207
  3. RESPLEN [Concomitant]
     Indication: UPPER RESPIRATORY TRACT INFLAMMATION
     Dosage: 60 MG, QD (NOT ADMINISTERED FROM 17 TO 22, AUGUST)
     Route: 048
     Dates: start: 20130810, end: 20130813
  4. MUCODYNE [Concomitant]
     Indication: UPPER RESPIRATORY TRACT INFLAMMATION
     Dosage: 1500 MG, QD (NOT ADMINISTERED FROM 17 TO 22, AUGUST)
     Route: 048
     Dates: start: 20130810, end: 20130816
  5. FERROMIA [Concomitant]
     Indication: ANAEMIA
     Dosage: 50 MG, QD
     Route: 048
     Dates: start: 20130830
  6. METFORMIN HYDROCHLORIDE [Concomitant]
     Indication: TYPE 2 DIABETES MELLITUS
     Dosage: UNK
     Route: 065
     Dates: start: 20111015
  7. COCARL [Concomitant]
     Dosage: UNK
     Dates: start: 20130831, end: 20130902

REACTIONS (2)
  - Pneumocystis jirovecii pneumonia [Recovering/Resolving]
  - HIV infection [Recovering/Resolving]
